FAERS Safety Report 25381397 (Version 3)
Quarter: 2025Q2

REPORT INFORMATION
  Report Type: Spontaneous
  Country: PT (occurrence: PT)
  Receive Date: 20250530
  Receipt Date: 20250618
  Transmission Date: 20250716
  Serious: Yes (Death)
  Sender: MERCK SHARP & DOHME LLC
  Company Number: PT-009507513-2290047

PATIENT
  Age: 57 Year
  Sex: Male

DRUGS (3)
  1. PEMBROLIZUMAB [Suspect]
     Active Substance: PEMBROLIZUMAB
  2. CARBOPLATIN [Suspect]
     Active Substance: CARBOPLATIN
  3. PACLITAXEL [Suspect]
     Active Substance: PACLITAXEL

REACTIONS (2)
  - Acute myocardial infarction [Fatal]
  - Cardiac arrest [Fatal]

NARRATIVE: CASE EVENT DATE: 20250101
